FAERS Safety Report 10470599 (Version 2)
Quarter: 2014Q3

REPORT INFORMATION
  Report Type: Spontaneous
  Country: US (occurrence: US)
  Receive Date: 20140923
  Receipt Date: 20140923
  Transmission Date: 20150326
  Serious: Yes (Hospitalization, Other)
  Sender: FDA-Public Use
  Company Number: US-GILEAD-2014-0112615

PATIENT
  Age: 62 Year
  Sex: Female

DRUGS (1)
  1. LETAIRIS [Suspect]
     Active Substance: AMBRISENTAN
     Indication: PRODUCT USED FOR UNKNOWN INDICATION
     Dosage: 5 MG, QD
     Route: 065
     Dates: start: 20130404

REACTIONS (4)
  - Knee arthroplasty [Unknown]
  - Swelling [Unknown]
  - Dyspnoea [Unknown]
  - Joint swelling [Unknown]

NARRATIVE: CASE EVENT DATE: 20140819
